FAERS Safety Report 21655307 (Version 3)
Quarter: 2022Q4

REPORT INFORMATION
  Report Type: Report from Study
  Country: DE (occurrence: None)
  Receive Date: 20221129
  Receipt Date: 20221223
  Transmission Date: 20230112
  Serious: Yes (Death, Hospitalization)
  Sender: FDA-Public Use
  Company Number: DE-ROCHE-3225541

PATIENT
  Age: 82 Year
  Sex: Male
  Weight: 70 kg

DRUGS (4)
  1. RITUXIMAB [Suspect]
     Active Substance: RITUXIMAB
     Indication: Waldenstrom^s macroglobulinaemia
     Route: 042
  2. RITUXIMAB [Suspect]
     Active Substance: RITUXIMAB
     Indication: Waldenstrom^s macroglobulinaemia
     Dosage: LAST ADMINISTRATION OF RITUXIMAB S.C. PRIOR TO THE REPORTED EVENT WAS ON 08/NOV/2022, ?LAST ADMINIST
     Route: 058
     Dates: start: 20200303
  3. IBRUTINIB [Suspect]
     Active Substance: IBRUTINIB
     Indication: Waldenstrom^s macroglobulinaemia
     Dosage: LAST ADMINISTRATION OF IBRUTINIB PRIOR TO THE REPORTED EVENT WAS ON 14/NOV/2022. IBRUTINIB WAS TEMPO
     Route: 048
     Dates: start: 20200204
  4. BORTEZOMIB [Suspect]
     Active Substance: BORTEZOMIB
     Indication: Waldenstrom^s macroglobulinaemia
     Dosage: NOT GIVEN DURING MAINTENANCE PHASE
     Route: 058

REACTIONS (2)
  - COVID-19 pneumonia [Fatal]
  - Superinfection bacterial [Fatal]

NARRATIVE: CASE EVENT DATE: 20221115
